FAERS Safety Report 9928694 (Version 1)
Quarter: 2014Q1

REPORT INFORMATION
  Report Type: Spontaneous
  Country: GR (occurrence: None)
  Receive Date: 20140224
  Receipt Date: 20140224
  Transmission Date: 20141002
  Serious: Yes (Death)
  Sender: FDA-Public Use
  Company Number: NGX_02246_2014

PATIENT
  Sex: Male

DRUGS (1)
  1. QUTENZA [Suspect]
     Indication: NEUROPATHY PERIPHERAL
     Dosage: (1DF, [PATCH] TOPICAL)
     Route: 061
     Dates: start: 20131105, end: 20131105

REACTIONS (1)
  - Death [None]
